FAERS Safety Report 8284421-5 (Version None)
Quarter: 2012Q2

REPORT INFORMATION
  Report Type: 
  Country: None (occurrence: None)
  Receive Date: 20120413
  Receipt Date: 20110829
  Transmission Date: 20120825
  Serious: No
  Sender: FDA-Public Use
  Company Number: US-ASTRAZENECA-2011SE46077

PATIENT
  Age: 56 Year
  Sex: Female

DRUGS (5)
  1. PRILOSEC [Suspect]
     Route: 048
  2. PRILOSEC [Suspect]
     Route: 048
  3. PRILOSEC [Suspect]
     Route: 048
  4. AMITRIPTYLINE HCL [Concomitant]
  5. NEXIUM [Suspect]
     Indication: GASTROOESOPHAGEAL REFLUX DISEASE
     Route: 048

REACTIONS (10)
  - DRUG INEFFECTIVE [None]
  - DYSPHAGIA [None]
  - OESOPHAGEAL IRRITATION [None]
  - SLEEP DISORDER DUE TO A GENERAL MEDICAL CONDITION [None]
  - GASTROOESOPHAGEAL REFLUX DISEASE [None]
  - DYSPEPSIA [None]
  - DRUG DOSE OMISSION [None]
  - CHEST PAIN [None]
  - COUGH [None]
  - DYSPHONIA [None]
